FAERS Safety Report 9729809 (Version 2)
Quarter: 2013Q4

REPORT INFORMATION
  Report Type: Spontaneous
  Country: GB (occurrence: None)
  Receive Date: 20131203
  Receipt Date: 20131206
  Transmission Date: 20140711
  Serious: Yes (Hospitalization)
  Sender: FDA-Public Use
  Company Number: AUR-APL-2013-09899

PATIENT
  Age: 81 Year
  Sex: Male

DRUGS (11)
  1. RAMIPRIL [Suspect]
     Indication: CARDIAC FAILURE CHRONIC
     Dosage: ORAL
     Route: 048
     Dates: start: 20131107, end: 20131108
  2. ACITRETIN (ACITRETIN) [Concomitant]
  3. ASPIRIN (ACETYLSALICYLIC AID) [Concomitant]
  4. BISOPROLOL (BISOPROLOL) [Concomitant]
  5. CLENIL MODULITE (BECLOMETASONE DIPROPIONATE) [Concomitant]
  6. DIGOXIN (DIGOXIN) [Concomitant]
  7. FINASTERIDE (FINASTERIDE) [Concomitant]
  8. LANSOPRAZOLE (LANSOPRAZOLE) [Concomitant]
  9. SIMVASTATIN (SIMVASTATIN) [Concomitant]
  10. TAMSULOSIN (TAMSULOSIN) [Concomitant]
  11. FUROSEMIDE (FUROSEMIDE) [Concomitant]

REACTIONS (1)
  - Dermatitis bullous [None]
